FAERS Safety Report 13869871 (Version 1)
Quarter: 2017Q3

REPORT INFORMATION
  Report Type: Spontaneous
  Country: BR (occurrence: BR)
  Receive Date: 20170815
  Receipt Date: 20170815
  Transmission Date: 20171127
  Serious: Yes (Other)
  Sender: FDA-Public Use
  Company Number: BR-SA-2017SA144847

PATIENT
  Sex: Female

DRUGS (1)
  1. CLEXANE SAFETY LOCK [Suspect]
     Active Substance: ENOXAPARIN SODIUM
     Indication: HYPERCOAGULATION
     Route: 065

REACTIONS (2)
  - High risk pregnancy [Unknown]
  - Exposure during pregnancy [Unknown]
